FAERS Safety Report 7493650-X (Version None)
Quarter: 2011Q2

REPORT INFORMATION
  Report Type: 
  Country: None (occurrence: None)
  Receive Date: 20110513
  Receipt Date: 20110502
  Transmission Date: 20111010
  Serious: Yes (Hospitalization)
  Sender: FDA-Public Use
  Company Number: 032097

PATIENT
  Sex: Male

DRUGS (11)
  1. MEDROL [Suspect]
     Dosage: (ORAL)
     Route: 048
     Dates: start: 20101001
  2. ATENOLOL [Suspect]
     Dosage: ORAL
     Route: 048
  3. IMOVANE (IMOVANE) (NOT SPECIFIED) [Suspect]
     Dosage: (ORAL)
     Route: 048
     Dates: end: 20110223
  4. KELEROID [Concomitant]
  5. KEPPRA [Suspect]
     Indication: CONVULSION
     Dosage: (ORAL), (DOSE DECREASED ORAL)
     Route: 048
     Dates: start: 20110228, end: 20110303
  6. KEPPRA [Suspect]
     Indication: CONVULSION
     Dosage: (ORAL), (DOSE DECREASED ORAL)
     Route: 048
     Dates: start: 20101001, end: 20110227
  7. DOMPERIDONE (DOMPERIDONE) [Suspect]
     Dosage: (ORAL)
     Route: 048
     Dates: start: 20110201, end: 20110224
  8. ESOMEPRAZOLE MAGNESIUM (NEXIUM) [Suspect]
     Dosage: (ORAL)
     Route: 048
     Dates: start: 20101001, end: 20110223
  9. FUROSEMIDE [Suspect]
     Dosage: (ORAL)
     Route: 048
     Dates: start: 20110211, end: 20110224
  10. TEMODAL [Suspect]
     Indication: GLIOBLASTOMA
     Dosage: (ORAL)
     Route: 048
     Dates: start: 20110101, end: 20110223
  11. ATACAND [Suspect]
     Dosage: (ORAL)
     Route: 048

REACTIONS (5)
  - CELL DEATH [None]
  - RENAL IMPAIRMENT [None]
  - JAUNDICE [None]
  - CHOLESTASIS [None]
  - DEHYDRATION [None]
